FAERS Safety Report 24242267 (Version 1)
Quarter: 2024Q3

REPORT INFORMATION
  Report Type: Spontaneous
  Country: DE (occurrence: DE)
  Receive Date: 20240823
  Receipt Date: 20240823
  Transmission Date: 20241016
  Serious: Yes (Hospitalization)
  Sender: Vantive US Healthcare
  Company Number: DE-VANTIVE-2024VAN019035

PATIENT
  Sex: Female

DRUGS (1)
  1. NUTRINEAL PD4 [Suspect]
     Active Substance: AMINO ACIDS\CALCIUM CHLORIDE\MAGNESIUM CHLORIDE\SODIUM CHLORIDE\SODIUM LACTATE
     Dosage: OVERNIGHT
     Route: 033

REACTIONS (3)
  - Mental disorder [Unknown]
  - Pain [Unknown]
  - Irritability [Unknown]
